APPROVED DRUG PRODUCT: ERTUGLIFLOZIN
Active Ingredient: ERTUGLIFLOZIN
Strength: 15MG
Dosage Form/Route: TABLET;ORAL
Application: A216947 | Product #002
Applicant: AUROBINDO PHARMA LTD
Approved: Jul 13, 2023 | RLD: No | RS: No | Type: DISCN